FAERS Safety Report 5913421-2 (Version None)
Quarter: 2008Q4

REPORT INFORMATION
  Report Type: 
  Country: None (occurrence: None)
  Receive Date: 20081007
  Receipt Date: 20080922
  Transmission Date: 20090506
  Serious: Yes (Other)
  Sender: FDA-Public Use
  Company Number: 2008S1017159

PATIENT
  Age: 45 Year
  Sex: Male

DRUGS (3)
  1. OMEPRAZOLE [Suspect]
     Indication: GASTROOESOPHAGEAL REFLUX DISEASE
     Dosage: 20 MG; ; ORAL
     Route: 048
     Dates: start: 20071224
  2. OXYTETRACYCLINE [Concomitant]
  3. SUMATRIPTAN SUCCINATE [Concomitant]

REACTIONS (1)
  - DRUG INEFFECTIVE [None]
